FAERS Safety Report 6381904-X (Version None)
Quarter: 2009Q3

REPORT INFORMATION
  Report Type: 
  Country: None (occurrence: None)
  Receive Date: 20090930
  Receipt Date: 20090824
  Transmission Date: 20100115
  Serious: No
  Sender: FDA-Public Use
  Company Number: US-BAYER-200913805BCC

PATIENT
  Age: 53 Year
  Sex: Female
  Weight: 61 kg

DRUGS (4)
  1. ALEVE (CAPLET) [Suspect]
     Indication: MYALGIA
     Dosage: TOTAL DAILY DOSE: 440 MG  UNIT DOSE: 220 MG
     Route: 048
  2. SYNTHROID [Concomitant]
     Route: 065
  3. MOTRIN [Concomitant]
     Route: 065
  4. UNKNOWN STOMACH MEDICATION [Concomitant]
     Route: 065

REACTIONS (1)
  - DIZZINESS [None]
